FAERS Safety Report 11013773 (Version 2)
Quarter: 2015Q2

REPORT INFORMATION
  Report Type: Spontaneous
  Country: US (occurrence: US)
  Receive Date: 20150412
  Receipt Date: 20150526
  Transmission Date: 20150821
  Serious: No
  Sender: FDA-Public Use
  Company Number: US-JNJFOC-20140413056

PATIENT
  Sex: Male
  Weight: 82.56 kg

DRUGS (2)
  1. PANCREAZE [Suspect]
     Active Substance: PANCRELIPASE
     Indication: ABDOMINAL PAIN UPPER
     Route: 048
     Dates: start: 2006, end: 20140314
  2. PANCREAZE [Suspect]
     Active Substance: PANCRELIPASE
     Indication: ABDOMINAL PAIN UPPER
     Route: 048
     Dates: start: 20140314

REACTIONS (2)
  - Flatulence [Recovering/Resolving]
  - Diarrhoea [Recovering/Resolving]

NARRATIVE: CASE EVENT DATE: 2013
